FAERS Safety Report 6266777-8 (Version None)
Quarter: 2009Q3

REPORT INFORMATION
  Report Type: 
  Country: None (occurrence: None)
  Receive Date: 20090714
  Receipt Date: 20071003
  Transmission Date: 20100115
  Serious: Yes (Other)
  Sender: FDA-Public Use
  Company Number: US-ASTRAZENECA-2007UW18657

PATIENT
  Age: 53 Year
  Sex: Female
  Weight: 65.8 kg

DRUGS (22)
  1. SEROQUEL [Suspect]
     Dosage: 25-50 MG
     Route: 048
     Dates: start: 20040229
  2. ZYPREXA [Concomitant]
  3. ADVAIR HFA [Concomitant]
  4. ENBREL [Concomitant]
  5. ALBUTEROL [Concomitant]
  6. TOPAMAX [Concomitant]
  7. FEMHRT [Concomitant]
  8. TRAZODONE [Concomitant]
  9. NEURONTIN [Concomitant]
  10. LIPITOR [Concomitant]
  11. EFFEXOR XR [Concomitant]
  12. ASPIRIN [Concomitant]
  13. NORVASC [Concomitant]
  14. NEXIUM [Concomitant]
  15. NASACORT AQ [Concomitant]
  16. TRAMADOL HYDROCHLORIDE [Concomitant]
  17. GEODON [Concomitant]
  18. PROVIGIL [Concomitant]
  19. PERCOCET [Concomitant]
  20. DITROPAN [Concomitant]
  21. METHOTREXATE [Concomitant]
  22. ESTRACE [Concomitant]

REACTIONS (5)
  - DIABETES MELLITUS [None]
  - DIABETIC COMA [None]
  - DIABETIC NEUROPATHY [None]
  - KETOACIDOSIS [None]
  - TYPE 2 DIABETES MELLITUS [None]
